FAERS Safety Report 5586743-5 (Version None)
Quarter: 2008Q1

REPORT INFORMATION
  Report Type: 
  Country: None (occurrence: None)
  Receive Date: 20080110
  Receipt Date: 20071014
  Transmission Date: 20080703
  Serious: No
  Sender: FDA-Public Use
  Company Number: US-BAYER-US-2007-039233

PATIENT
  Age: 29 Year
  Sex: Female
  Weight: 68 kg

DRUGS (4)
  1. YAZ [Suspect]
     Indication: ORAL CONTRACEPTION
     Route: 048
     Dates: start: 20070930
  2. DIFFERIN [Suspect]
     Route: 061
  3. WELLBUTRIN [Concomitant]
     Route: 048
  4. XANAX [Concomitant]
     Route: 048

REACTIONS (4)
  - DRY SKIN [None]
  - ERYTHEMA [None]
  - NAUSEA [None]
  - RASH MACULAR [None]
